FAERS Safety Report 13835355 (Version 1)
Quarter: 2017Q3

REPORT INFORMATION
  Report Type: Spontaneous
  Country: US (occurrence: US)
  Receive Date: 20170804
  Receipt Date: 20170804
  Transmission Date: 20171127
  Serious: Yes (Other)
  Sender: FDA-Public Use
  Company Number: None

PATIENT
  Age: 60 Year
  Sex: Female
  Weight: 109.8 kg

DRUGS (6)
  1. HYDROCHLOROTHIAZIDE. [Concomitant]
     Active Substance: HYDROCHLOROTHIAZIDE
  2. VITAMIN [Concomitant]
     Active Substance: VITAMINS
  3. WOMES OVER 50 ONE A DAY [Concomitant]
  4. LUMIGAN [Concomitant]
     Active Substance: BIMATOPROST
  5. LEVETIRACETAM. [Suspect]
     Active Substance: LEVETIRACETAM
     Indication: SEIZURE
     Dosage: ?          QUANTITY:2 TABLET(S);?
     Route: 048
     Dates: start: 20141121, end: 20170803
  6. COMIGAN [Concomitant]

REACTIONS (13)
  - Headache [None]
  - Dysgeusia [None]
  - Antisocial behaviour [None]
  - Balance disorder [None]
  - Anger [None]
  - Dyspepsia [None]
  - Fatigue [None]
  - Crying [None]
  - Dizziness [None]
  - Sleep disorder [None]
  - Disturbance in attention [None]
  - Impaired work ability [None]
  - Loss of personal independence in daily activities [None]

NARRATIVE: CASE EVENT DATE: 20170801
